FAERS Safety Report 13077809 (Version 2)
Quarter: 2017Q1

REPORT INFORMATION
  Report Type: Report from Study
  Country: US (occurrence: US)
  Receive Date: 20170101
  Receipt Date: 20170214
  Transmission Date: 20170428
  Serious: Yes (Hospitalization, Other)
  Sender: FDA-Public Use
  Company Number: US-AMGEN-USASL2016183800

PATIENT
  Age: 72 Year
  Sex: Male

DRUGS (2)
  1. KYPROLIS [Suspect]
     Active Substance: CARFILZOMIB
     Indication: PLASMA CELL MYELOMA
     Dosage: UNK
     Route: 065
  2. POMALYST [Concomitant]
     Active Substance: POMALIDOMIDE
     Dosage: UNK

REACTIONS (3)
  - Pneumonia [Unknown]
  - Thrombosis [Unknown]
  - Middle ear effusion [Unknown]
